FAERS Safety Report 12614626 (Version 2)
Quarter: 2017Q4

REPORT INFORMATION
  Report Type: Spontaneous
  Country: US (occurrence: US)
  Receive Date: 20160802
  Receipt Date: 20171201
  Transmission Date: 20180320
  Serious: No
  Sender: FDA-Public Use
  Company Number: US-PFIZER INC-2016361772

PATIENT
  Age: 53 Year
  Sex: Male
  Weight: 92.97 kg

DRUGS (17)
  1. CIALIS [Concomitant]
     Active Substance: TADALAFIL
     Dosage: UNK
  2. GABAPENTIN. [Concomitant]
     Active Substance: GABAPENTIN
     Dosage: UNK
  3. LISINOPRIL. [Concomitant]
     Active Substance: LISINOPRIL
     Dosage: UNK
  4. DESCOVY [Concomitant]
     Active Substance: EMTRICITABINE\TENOFOVIR ALAFENAMIDE FUMARATE
     Dosage: UNK
  5. DEXTROAMPHETAMINE. [Concomitant]
     Active Substance: DEXTROAMPHETAMINE
     Dosage: UNK
  6. ALFUZOSIN [Concomitant]
     Active Substance: ALFUZOSIN
     Dosage: UNK
  7. GENOTROPIN MQ [Suspect]
     Active Substance: SOMATROPIN
     Indication: HYPOPITUITARISM
     Dosage: 0.6 MG, DAILY(0.25 ML OR 1 PEN)
     Route: 058
     Dates: start: 20171028
  8. TECFIDERA [Concomitant]
     Active Substance: DIMETHYL FUMARATE
     Dosage: 240 MG, UNK
  9. AUBAGIO [Concomitant]
     Active Substance: TERIFLUNOMIDE
     Dosage: UNK
  10. ESZOPICLONE. [Concomitant]
     Active Substance: ESZOPICLONE
     Dosage: UNK
  11. MEMANTINE. [Concomitant]
     Active Substance: MEMANTINE
     Dosage: UNK
  12. TIVICAY [Concomitant]
     Active Substance: DOLUTEGRAVIR SODIUM
     Dosage: UNK
  13. BACLOFEN. [Concomitant]
     Active Substance: BACLOFEN
     Dosage: UNK
  14. ATROPINE. [Concomitant]
     Active Substance: ATROPINE
     Dosage: UNK
  15. BUPROPION. [Concomitant]
     Active Substance: BUPROPION
     Dosage: UNK
  16. TESTOSTERONE. [Concomitant]
     Active Substance: TESTOSTERONE
     Dosage: UNK
  17. DONEPEZIL. [Concomitant]
     Active Substance: DONEPEZIL
     Dosage: UNK

REACTIONS (7)
  - Abdominal discomfort [Recovering/Resolving]
  - Crying [Unknown]
  - Urticaria [Recovering/Resolving]
  - Feeling abnormal [Unknown]
  - Affect lability [Unknown]
  - Rash [Recovered/Resolved]
  - Throat irritation [Unknown]
